FAERS Safety Report 12759242 (Version 1)
Quarter: 2016Q3

REPORT INFORMATION
  Report Type: Spontaneous
  Country: US (occurrence: US)
  Receive Date: 20160916
  Receipt Date: 20160916
  Transmission Date: 20161109
  Serious: No
  Sender: FDA-Public Use
  Company Number: None

PATIENT
  Age: 75 Year
  Sex: Female

DRUGS (1)
  1. HUMIRA [Suspect]
     Active Substance: ADALIMUMAB
     Indication: RHEUMATOID ARTHRITIS
     Dosage: 1 PEN (40MG) EVERY 2 WEEKS SUBCUTANEOUSLY
     Route: 058
     Dates: start: 20160707

REACTIONS (1)
  - Fungal infection [None]

NARRATIVE: CASE EVENT DATE: 20160722
